FAERS Safety Report 4647862-0 (Version None)
Quarter: 2005Q2

REPORT INFORMATION
  Report Type: 
  Country: None (occurrence: None)
  Receive Date: 20050428
  Receipt Date: 20050422
  Transmission Date: 20051028
  Serious: Yes (Disabling)
  Sender: FDA-Public Use
  Company Number: B0379398A

PATIENT
  Sex: Male
  Weight: 72 kg

DRUGS (2)
  1. QUILONORM RETARD [Suspect]
     Indication: DEPRESSION
     Dosage: 675MG PER DAY
     Route: 048
     Dates: start: 19930101
  2. ST JOHNS WORT [Suspect]
     Indication: DEPRESSION
     Route: 048

REACTIONS (2)
  - CONDITION AGGRAVATED [None]
  - SCROTAL PAIN [None]
